FAERS Safety Report 8489058-0 (Version None)
Quarter: 2012Q3

REPORT INFORMATION
  Report Type: 
  Country: None (occurrence: None)
  Receive Date: 20120705
  Receipt Date: 20120501
  Transmission Date: 20120928
  Serious: Yes (Disabling, Other)
  Sender: FDA-Public Use
  Company Number: US-ROCHE-798346

PATIENT

DRUGS (1)
  1. VELCADE [Suspect]
     Indication: MACULAR OEDEMA
     Route: 050

REACTIONS (4)
  - PRODUCT QUALITY ISSUE [None]
  - INTRAOCULAR PRESSURE INCREASED [None]
  - INFLAMMATION [None]
  - VISUAL ACUITY REDUCED [None]
